FAERS Safety Report 7961507 (Version 3)
Quarter: 2013Q4

REPORT INFORMATION
  Report Type: Spontaneous
  Country: US (occurrence: US)
  Receive Date: 20110526
  Receipt Date: 20131029
  Transmission Date: 20140711
  Serious: Yes (Other)
  Sender: FDA-Public Use
  Company Number: US-JNJFOC-20110509338

PATIENT
  Age: 52 Year
  Sex: Male
  Weight: 92.99 kg

DRUGS (4)
  1. LEVAQUIN [Suspect]
     Indication: PNEUMONIA
     Route: 048
     Dates: start: 20090406, end: 20090416
  2. ZOCOR [Concomitant]
     Indication: BLOOD CHOLESTEROL
     Route: 065
  3. ALPRAZOLAM [Concomitant]
     Indication: DEPRESSION
     Route: 065
  4. LEXAPRO [Concomitant]
     Indication: DEPRESSION
     Route: 065

REACTIONS (3)
  - Ligament injury [Unknown]
  - Trigger finger [Unknown]
  - Tendonitis [Unknown]
